FAERS Safety Report 17865384 (Version 1)
Quarter: 2020Q2

REPORT INFORMATION
  Report Type: Spontaneous
  Country: AU (occurrence: AU)
  Receive Date: 20200605
  Receipt Date: 20200605
  Transmission Date: 20200714
  Serious: Yes (Other)
  Sender: FDA-Public Use
  Company Number: AU-009507513-2006AUS000615

PATIENT
  Age: 27 Year
  Sex: Female

DRUGS (4)
  1. IMPLANON [Interacting]
     Active Substance: ETONOGESTREL
     Dosage: UNK
     Dates: start: 20040514, end: 20050420
  2. IMPLANON [Suspect]
     Active Substance: ETONOGESTREL
     Dosage: UNK
     Dates: start: 200208, end: 20040514
  3. TEGRETOL [Interacting]
     Active Substance: CARBAMAZEPINE
     Dosage: 1 GRAM, QD
     Route: 048
  4. LEVOTHYROXINE SODIUM. [Concomitant]
     Active Substance: LEVOTHYROXINE SODIUM
     Dosage: UNK

REACTIONS (3)
  - Drug interaction [Unknown]
  - Unintended pregnancy [Unknown]
  - Metrorrhagia [Unknown]

NARRATIVE: CASE EVENT DATE: 200503
